FAERS Safety Report 17389123 (Version 2)
Quarter: 2020Q1

REPORT INFORMATION
  Report Type: Spontaneous
  Country: IL (occurrence: IL)
  Receive Date: 20200207
  Receipt Date: 20200303
  Transmission Date: 20200409
  Serious: Yes (Other)
  Sender: FDA-Public Use
  Company Number: IL-AMGEN-ISRSP2020019636

PATIENT
  Sex: Male

DRUGS (1)
  1. PROLIA [Suspect]
     Active Substance: DENOSUMAB
     Indication: PRODUCT USED FOR UNKNOWN INDICATION
     Dosage: UNK
     Route: 065
     Dates: start: 20190806

REACTIONS (6)
  - Osteomyelitis [Unknown]
  - Osteonecrosis [Unknown]
  - Osteosclerosis [Unknown]
  - Arteriosclerosis [Unknown]
  - Middle ear effusion [Unknown]
  - Osteopenia [Unknown]

NARRATIVE: CASE EVENT DATE: 201912
